FAERS Safety Report 12664696 (Version 1)
Quarter: 2016Q3

REPORT INFORMATION
  Report Type: Spontaneous
  Country: JP (occurrence: JP)
  Receive Date: 20160818
  Receipt Date: 20160818
  Transmission Date: 20161109
  Serious: Yes (Hospitalization)
  Sender: FDA-Public Use
  Company Number: JP-SA-2016SA149456

PATIENT

DRUGS (5)
  1. BAYASPIRIN [Suspect]
     Active Substance: ASPIRIN
     Indication: INTRA-CEREBRAL ANEURYSM OPERATION
     Route: 048
     Dates: start: 20160509, end: 20160509
  2. PLAVIX [Suspect]
     Active Substance: CLOPIDOGREL BISULFATE
     Indication: INTRA-CEREBRAL ANEURYSM OPERATION
     Route: 048
     Dates: start: 20160509, end: 20160509
  3. PLACENTA [Concomitant]
     Active Substance: SUS SCROFA PLACENTA
     Route: 048
  4. MICAMLO AP [Concomitant]
     Active Substance: AMLODIPINE BESYLATE\TELMISARTAN
     Route: 048
  5. NEXIUM [Suspect]
     Active Substance: ESOMEPRAZOLE MAGNESIUM
     Indication: PROPHYLAXIS AGAINST GASTROINTESTINAL ULCER
     Route: 048
     Dates: start: 20160509, end: 20160509

REACTIONS (1)
  - Anaphylactic reaction [Recovered/Resolved]

NARRATIVE: CASE EVENT DATE: 20160509
